FAERS Safety Report 6631234-3 (Version None)
Quarter: 2010Q1

REPORT INFORMATION
  Report Type: 
  Country: None (occurrence: None)
  Receive Date: 20100312
  Receipt Date: 20100302
  Transmission Date: 20100710
  Serious: Yes (Other)
  Sender: FDA-Public Use
  Company Number: US-BIOGENIDEC-2010BI005870

PATIENT
  Age: 58 Year
  Sex: Female

DRUGS (2)
  1. AVONEX [Suspect]
     Indication: MULTIPLE SCLEROSIS
     Route: 030
     Dates: start: 20011026, end: 20040828
  2. AVONEX [Suspect]
     Route: 030
     Dates: start: 20090901, end: 20100118

REACTIONS (2)
  - EPILEPSY [None]
  - PYREXIA [None]
